FAERS Safety Report 19459888 (Version 1)
Quarter: 2021Q2

REPORT INFORMATION
  Report Type: Spontaneous
  Country: GB (occurrence: GB)
  Receive Date: 20210625
  Receipt Date: 20210625
  Transmission Date: 20210717
  Serious: No
  Sender: FDA-Public Use
  Company Number: GB-MARKSANS PHARMA LIMITED-2113108

PATIENT

DRUGS (1)
  1. IBUPROFEN MOLECULE FROM UK MARKET [Suspect]
     Active Substance: IBUPROFEN
     Indication: PAIN

REACTIONS (2)
  - Throat irritation [None]
  - Dysphonia [None]
